FAERS Safety Report 7364977-7 (Version None)
Quarter: 2011Q1

REPORT INFORMATION
  Report Type: 
  Country: None (occurrence: None)
  Receive Date: 20110321
  Receipt Date: 20110308
  Transmission Date: 20110831
  Serious: Yes (Hospitalization)
  Sender: FDA-Public Use
  Company Number: US-JNJFOC-20060400792

PATIENT
  Sex: Male
  Weight: 65 kg

DRUGS (16)
  1. INFLIXIMAB [Suspect]
     Route: 042
  2. METHOTREXATE [Concomitant]
     Indication: CROHN'S DISEASE
  3. URSODIOL [Concomitant]
  4. M.V.I. [Concomitant]
  5. INFLIXIMAB [Suspect]
     Indication: DRUG DEPENDENCE
     Dosage: DOSE #20
     Route: 042
  6. ATIVAN [Concomitant]
  7. ELAVIL [Concomitant]
  8. HYOSCYAMINE [Concomitant]
  9. INFLIXIMAB [Suspect]
     Dosage: 19 DOSES TOTAL
     Route: 042
  10. INFLIXIMAB [Suspect]
     Dosage: 19 DOSES TOTAL
     Route: 042
  11. INFLIXIMAB [Suspect]
     Route: 042
  12. GABAPENTIN [Concomitant]
  13. URSODIOL [Concomitant]
     Indication: CROHN'S DISEASE
  14. ZOFRAN [Concomitant]
  15. INFLIXIMAB [Suspect]
     Indication: CROHN'S DISEASE
     Dosage: DOSE #20
     Route: 042
  16. PREVACID [Concomitant]
     Indication: CROHN'S DISEASE

REACTIONS (2)
  - ABSCESS [None]
  - ABDOMINAL PAIN [None]
